FAERS Safety Report 24852092 (Version 2)
Quarter: 2025Q2

REPORT INFORMATION
  Report Type: Spontaneous
  Country: US (occurrence: US)
  Receive Date: 20250116
  Receipt Date: 20250423
  Transmission Date: 20250717
  Serious: Yes (Other)
  Sender: SK LIFE SCIENCE
  Company Number: US-SK LIFE SCIENCE, INC-SKPVG-2024-002165

PATIENT

DRUGS (17)
  1. XCOPRI [Suspect]
     Active Substance: CENOBAMATE
     Indication: Epilepsy
     Route: 048
  2. XCOPRI [Suspect]
     Active Substance: CENOBAMATE
     Indication: Seizure
     Route: 048
  3. XCOPRI [Suspect]
     Active Substance: CENOBAMATE
     Dosage: 75 MILLIGRAM, QD (THE PATIENT IS BREAKING A 150 MG TABLET IN HALF TO GET THE 75 MG DAILY DOSE AT NIG
     Route: 048
     Dates: end: 20240910
  4. XCOPRI [Suspect]
     Active Substance: CENOBAMATE
     Dosage: 100 MILLIGRAM, QD
     Route: 048
     Dates: end: 20250206
  5. XCOPRI [Suspect]
     Active Substance: CENOBAMATE
     Dosage: STARTED TAKING 50MG AND 100MG ONCE DAILY AT DIFFERENT TIMES
     Route: 048
     Dates: end: 20250411
  6. DEPAKOTE [Suspect]
     Active Substance: DIVALPROEX SODIUM
     Indication: Product used for unknown indication
     Dosage: 1500 MILLIGRAM, (500MG MORNING AND 1000MG AT NIGHT
     Route: 065
  7. LYRICA [Concomitant]
     Active Substance: PREGABALIN
     Indication: Seizure
     Dosage: 200 MILLIGRAM, MORNING AND NIGHT
     Route: 065
  8. LEVOTHYROXINE [Concomitant]
     Active Substance: LEVOTHYROXINE
     Indication: Hypothyroidism
     Route: 065
  9. NAMENDA [Concomitant]
     Active Substance: MEMANTINE HYDROCHLORIDE
     Indication: Memory impairment
     Dosage: 10 MILLIGRAM, 10MG IN THE MORNING AND 10MG AT NIGHT
     Route: 065
  10. SAVELLA [Concomitant]
     Active Substance: MILNACIPRAN HYDROCHLORIDE
     Indication: Neuralgia
     Dosage: 100 MILLIGRAM, BID
     Route: 065
  11. HERBALS [Concomitant]
     Active Substance: HERBALS
     Indication: Headache
     Route: 065
  12. MELATONIN [Concomitant]
     Active Substance: MELATONIN
     Indication: Product used for unknown indication
     Dosage: 10 MILLIGRAM, AT NIGHT
     Route: 065
  13. NURTEC ODT [Concomitant]
     Active Substance: RIMEGEPANT SULFATE
     Indication: Migraine
     Route: 065
  14. PROMETHAZINE HYDROCHLORIDE [Concomitant]
     Active Substance: PROMETHAZINE HYDROCHLORIDE
     Indication: Migraine
     Route: 065
  15. ESTRADIOL [Concomitant]
     Active Substance: ESTRADIOL
     Indication: Product used for unknown indication
     Dosage: UNK, 2 TIMES/WK
     Route: 067
  16. FRANKINCENSE [Concomitant]
     Active Substance: FRANKINCENSE
     Indication: Product used for unknown indication
     Route: 065
  17. VITAMINS NOS [Concomitant]
     Active Substance: VITAMINS
     Indication: Product used for unknown indication
     Route: 065

REACTIONS (19)
  - Suicidal ideation [Recovering/Resolving]
  - Ophthalmoplegia [Recovering/Resolving]
  - Adverse drug reaction [Unknown]
  - Off label use [Unknown]
  - Off label use [Unknown]
  - Wrong technique in product usage process [Unknown]
  - Product prescribing error [Unknown]
  - Circumstance or information capable of leading to medication error [Unknown]
  - Seizure [Not Recovered/Not Resolved]
  - Partial seizures [Not Recovered/Not Resolved]
  - Generalised tonic-clonic seizure [Recovering/Resolving]
  - Anxiety [Recovering/Resolving]
  - Affective disorder [Recovering/Resolving]
  - Essential tremor [Recovering/Resolving]
  - Visual impairment [Recovering/Resolving]
  - Depression [Recovering/Resolving]
  - Amnesia [Recovering/Resolving]
  - Fatigue [Not Recovered/Not Resolved]
  - Disturbance in attention [Recovering/Resolving]
